FAERS Safety Report 10029646 (Version 1)
Quarter: 2014Q1

REPORT INFORMATION
  Report Type: Spontaneous
  Country: US (occurrence: None)
  Receive Date: 20140320
  Receipt Date: 20140320
  Transmission Date: 20141002
  Serious: Yes (Other)
  Sender: FDA-Public Use
  Company Number: None

PATIENT
  Age: 78 Year
  Sex: Female
  Weight: 73 kg

DRUGS (8)
  1. APIXABAN [Suspect]
     Indication: CEREBROVASCULAR ACCIDENT PROPHYLAXIS
     Route: 048
     Dates: start: 20140308, end: 20140308
  2. ACETAMINOPHIN [Concomitant]
  3. DOCUSATE SODIUM [Concomitant]
  4. ROSUVASTATIN [Concomitant]
  5. METOPROLOL TARTRATE [Concomitant]
  6. DIGOXIN [Concomitant]
  7. MAGNESIUM OXIDE [Concomitant]
  8. HEPARIN INJECTION [Concomitant]

REACTIONS (2)
  - Rash macular [None]
  - Eosinophil count increased [None]
